FAERS Safety Report 15483336 (Version 1)
Quarter: 2018Q4

REPORT INFORMATION
  Report Type: Report from Study
  Country: IE (occurrence: IE)
  Receive Date: 20181010
  Receipt Date: 20181010
  Transmission Date: 20190205
  Serious: Yes (Life-Threatening, Hospitalization, Other)
  Sender: FDA-Public Use
  Company Number: IE-AMGEN-IRLSL2018141413

PATIENT
  Age: 73 Year
  Sex: Male

DRUGS (13)
  1. ARANESP [Suspect]
     Active Substance: DARBEPOETIN ALFA
     Indication: CHRONIC KIDNEY DISEASE
     Dosage: 30 MUG, QMO
     Route: 058
     Dates: start: 20180426
  2. FUROSEMIDE. [Concomitant]
     Active Substance: FUROSEMIDE
     Dosage: 40 MG, QD
  3. METOCOR [Concomitant]
     Active Substance: METOPROLOL TARTRATE
     Dosage: 75 MG, QD
  4. WARFARIN [Concomitant]
     Active Substance: WARFARIN
     Dosage: 0 MG, QD
  5. LANOXIN [Concomitant]
     Active Substance: DIGOXIN
     Dosage: 62.5 MUG, UNK
  6. GALFER [Concomitant]
     Active Substance: IRON
     Dosage: 305 MG, QD
  7. NEPRAMEL [Concomitant]
     Dosage: 20 MG, QD
  8. ONE ALPHA [Concomitant]
     Active Substance: ALFACALCIDOL
     Dosage: 0.25 MUG, UNK
  9. RAMITACE [Concomitant]
     Dosage: 2.5 MG, QD
  10. AZITHROMYCIN ANHYDROUS. [Concomitant]
     Active Substance: AZITHROMYCIN ANHYDROUS
     Dosage: 250 MG, QD
  11. AMITRIPTYLINE [Concomitant]
     Active Substance: AMITRIPTYLINE
     Dosage: 10 MG, QD (AT NIGHT)
  12. ATORVASTATIN [Concomitant]
     Active Substance: ATORVASTATIN
     Dosage: 40 MG, QD (AT NIGHT)
  13. FOLIC ACID. [Concomitant]
     Active Substance: FOLIC ACID
     Dosage: 5 MG, QD

REACTIONS (1)
  - Bradycardia [Recovering/Resolving]

NARRATIVE: CASE EVENT DATE: 201805
